FAERS Safety Report 17058396 (Version 2)
Quarter: 2019Q4

REPORT INFORMATION
  Report Type: Report from Study
  Country: GB (occurrence: GB)
  Receive Date: 20191121
  Receipt Date: 20191206
  Transmission Date: 20200122
  Serious: Yes (Other)
  Sender: FDA-Public Use
  Company Number: GB-SA-2019SA320953

PATIENT
  Age: 60 Year
  Sex: Female

DRUGS (2)
  1. RASBURICASE [Suspect]
     Active Substance: RASBURICASE
     Indication: HAEMATOLOGICAL MALIGNANCY
     Dosage: UNK UNK, QD (FULL DOSE/KG)
     Route: 042
  2. RASBURICASE [Suspect]
     Active Substance: RASBURICASE
     Indication: T-CELL PROLYMPHOCYTIC LEUKAEMIA

REACTIONS (1)
  - Tumour lysis syndrome [Unknown]
